FAERS Safety Report 7759092-4 (Version None)
Quarter: 2011Q3

REPORT INFORMATION
  Report Type: 
  Country: None (occurrence: None)
  Receive Date: 20110919
  Receipt Date: 20110909
  Transmission Date: 20111222
  Serious: Yes (Other)
  Sender: FDA-Public Use
  Company Number: PHHY2009CA42839

PATIENT
  Sex: Female

DRUGS (2)
  1. ZOLEDRONOC ACID [Suspect]
     Indication: OSTEOPOROSIS
     Dosage: UNK
     Dates: start: 20090901
  2. METOCLOPRAMIDE [Concomitant]

REACTIONS (5)
  - UPPER LIMB FRACTURE [None]
  - SPINAL FRACTURE [None]
  - WEIGHT DECREASED [None]
  - MOVEMENT DISORDER [None]
  - ARTHRALGIA [None]
